FAERS Safety Report 9913274 (Version 7)
Quarter: 2015Q2

REPORT INFORMATION
  Report Type: Spontaneous
  Country: US (occurrence: US)
  Receive Date: 20140220
  Receipt Date: 20150608
  Transmission Date: 20150821
  Serious: Yes (Hospitalization, Other)
  Sender: FDA-Public Use
  Company Number: US-009507513-1203USA02813

PATIENT
  Sex: Female
  Weight: 68.27 kg

DRUGS (8)
  1. FOSAMAX [Suspect]
     Active Substance: ALENDRONATE SODIUM
     Indication: OSTEOPOROSIS
     Dosage: 10 MG, UNK
     Route: 048
  2. FOSAMAX [Suspect]
     Active Substance: ALENDRONATE SODIUM
     Route: 048
  3. FOSAMAX [Suspect]
     Active Substance: ALENDRONATE SODIUM
     Dosage: UNK
     Route: 048
  4. FOSAMAX [Suspect]
     Active Substance: ALENDRONATE SODIUM
     Dosage: 70 MG, QW
     Route: 048
     Dates: start: 20010719
  5. FOSAMAX [Suspect]
     Active Substance: ALENDRONATE SODIUM
     Dosage: UNK UNK, QD
     Route: 048
  6. ALENDRONATE SODIUM. [Suspect]
     Active Substance: ALENDRONATE SODIUM
     Dosage: 70 MG, UNK
     Route: 048
  7. FOSAMAX PLUS D [Suspect]
     Active Substance: ALENDRONATE SODIUM\CHOLECALCIFEROL
     Route: 048
  8. FOSAMAX [Suspect]
     Active Substance: ALENDRONATE SODIUM
     Dosage: 5 MG, UNK
     Route: 048
     Dates: start: 20010105, end: 20010718

REACTIONS (29)
  - Medical device implantation [Unknown]
  - Thyroidectomy [Unknown]
  - Hyperlipidaemia [Unknown]
  - Medical device pain [Unknown]
  - Hysterectomy [Unknown]
  - Osteoarthritis [Unknown]
  - Medical device removal [Unknown]
  - Hypertension [Unknown]
  - Electrocardiogram T wave abnormal [Unknown]
  - Asthma [Unknown]
  - Intramedullary rod insertion [Unknown]
  - Fall [Unknown]
  - Road traffic accident [Unknown]
  - Neuropathy peripheral [Unknown]
  - Skin disorder [Unknown]
  - Asthenia [Unknown]
  - Salpingo-oophorectomy bilateral [Unknown]
  - Intervertebral disc protrusion [Unknown]
  - Arthralgia [Recovered/Resolved]
  - Femur fracture [Recovered/Resolved]
  - Menopausal symptoms [Unknown]
  - Thyroid cyst [Unknown]
  - Skin irritation [Recovering/Resolving]
  - Epistaxis [Recovered/Resolved]
  - Pelvic cyst [Unknown]
  - Arthritis [Unknown]
  - Tonsillectomy [Unknown]
  - Hypothyroidism [Unknown]
  - Constipation [Recovered/Resolved]

NARRATIVE: CASE EVENT DATE: 20041215
